FAERS Safety Report 4370707-3 (Version None)
Quarter: 2004Q2

REPORT INFORMATION
  Report Type: 
  Country: None (occurrence: None)
  Receive Date: 20040601
  Receipt Date: 20040526
  Transmission Date: 20050107
  Serious: Yes (Disabling)
  Sender: FDA-Public Use
  Company Number: HQWYE428827FEB04

PATIENT
  Age: 19 Year
  Sex: Male

DRUGS (1)
  1. EFFEXOR XR [Suspect]
     Indication: DEPRESSION
     Dosage: 75 MG 1X PER 1 DAY ORAL
     Route: 048
     Dates: start: 20031001, end: 20031001

REACTIONS (7)
  - ANHIDROSIS [None]
  - ANXIETY [None]
  - COORDINATION ABNORMAL [None]
  - HYPOAESTHESIA [None]
  - MOVEMENT DISORDER [None]
  - MYDRIASIS [None]
  - PAIN [None]
